FAERS Safety Report 14970053 (Version 1)
Quarter: 2018Q2

REPORT INFORMATION
  Report Type: Spontaneous
  Country: DE (occurrence: DE)
  Receive Date: 20180604
  Receipt Date: 20180604
  Transmission Date: 20180711
  Serious: Yes (Hospitalization)
  Sender: FDA-Public Use
  Company Number: DE-ANIPHARMA-2018-DE-000103

PATIENT
  Age: 62 Year
  Sex: Female

DRUGS (2)
  1. LEVOTHYROXINE SODIUM. [Concomitant]
     Active Substance: LEVOTHYROXINE SODIUM
     Dosage: 112 ?G, NK
     Route: 065
  2. CANDESARTAN HCT [Suspect]
     Active Substance: CANDESARTAN CILEXETIL\HYDROCHLOROTHIAZIDE
     Dosage: 16|12.5 MG, UNKNOWN
     Route: 048

REACTIONS (4)
  - Diarrhoea [Unknown]
  - Depressed level of consciousness [Unknown]
  - Nausea [Unknown]
  - Vomiting [Unknown]
